FAERS Safety Report 6801357-4 (Version None)
Quarter: 2010Q2

REPORT INFORMATION
  Report Type: 
  Country: None (occurrence: None)
  Receive Date: 20100629
  Receipt Date: 20100623
  Transmission Date: 20101027
  Serious: Yes (Hospitalization)
  Sender: FDA-Public Use
  Company Number: A0866777A

PATIENT
  Age: 22 Year
  Sex: Female

DRUGS (8)
  1. MALARONE [Suspect]
     Indication: MALARIA PROPHYLAXIS
     Route: 048
     Dates: start: 20100609, end: 20100618
  2. ZYRTEC-D 12 HOUR [Concomitant]
  3. BIRTH CONTROL [Concomitant]
  4. PREDNISONE [Concomitant]
  5. AUGMENTIN '125' [Concomitant]
  6. ANTIHISTAMINE [Concomitant]
  7. MALARONE [Concomitant]
     Route: 048
     Dates: start: 20090701
  8. MALARONE [Concomitant]
     Route: 048
     Dates: start: 20060701

REACTIONS (2)
  - URINARY TRACT INFECTION [None]
  - URTICARIA [None]
